FAERS Safety Report 4424447-2 (Version None)
Quarter: 2004Q3

REPORT INFORMATION
  Report Type: 
  Country: None (occurrence: None)
  Receive Date: 20040812
  Receipt Date: 20040708
  Transmission Date: 20050211
  Serious: Yes (Death, Life-Threatening)
  Sender: FDA-Public Use
  Company Number: FR-BRISTOL-MYERS SQUIBB COMPANY-12668794

PATIENT
  Age: 22 Year
  Sex: Female

DRUGS (7)
  1. HOLOXAN [Suspect]
     Indication: SARCOMA
     Route: 042
     Dates: start: 20040428, end: 20040428
  2. HOLOXAN [Suspect]
     Indication: NEOPLASM MALIGNANT
     Route: 042
     Dates: start: 20040428, end: 20040428
  3. UROMITEXAN [Suspect]
     Route: 042
     Dates: start: 20040428, end: 20040429
  4. CISPLATIN [Suspect]
     Indication: SARCOMA
     Route: 042
     Dates: start: 20040427, end: 20040427
  5. CISPLATIN [Suspect]
     Indication: NEOPLASM MALIGNANT
     Route: 042
     Dates: start: 20040427, end: 20040427
  6. ADRIAMYCIN PFS [Suspect]
     Indication: SARCOMA
     Route: 042
     Dates: start: 20040427, end: 20040427
  7. ADRIAMYCIN PFS [Suspect]
     Indication: NEOPLASM MALIGNANT
     Route: 042
     Dates: start: 20040427, end: 20040427

REACTIONS (2)
  - CARDIO-RESPIRATORY ARREST [None]
  - RENAL FAILURE ACUTE [None]
